FAERS Safety Report 19093323 (Version 2)
Quarter: 2021Q3

REPORT INFORMATION
  Report Type: Spontaneous
  Country: US (occurrence: US)
  Receive Date: 20210405
  Receipt Date: 20210908
  Transmission Date: 20211014
  Serious: Yes (Disabling)
  Sender: FDA-Public Use
  Company Number: US-AMERICAN REGENT INC-2021000817

PATIENT
  Age: 38 Year
  Sex: Female
  Weight: 101.13 kg

DRUGS (15)
  1. INJECTAFER [Suspect]
     Active Substance: FERRIC CARBOXYMALTOSE
     Indication: IRON DEFICIENCY ANAEMIA
     Dosage: 750 MILLIGRAM, 460 ML/HR, SINGLE
     Route: 042
     Dates: start: 20180808, end: 20180808
  2. AVIANE [Concomitant]
     Active Substance: ETHINYL ESTRADIOL\LEVONORGESTREL
     Indication: CONTRACEPTION
     Dosage: 0.1 MG?20 MCG QD
     Route: 048
     Dates: start: 20181210, end: 20190715
  3. PREVACID [Concomitant]
     Active Substance: LANSOPRAZOLE
     Indication: PRODUCT USED FOR UNKNOWN INDICATION
     Dosage: 30 MILLIGRAM, QD
     Route: 048
     Dates: start: 20180807, end: 20181123
  4. XIFAXAN [Concomitant]
     Active Substance: RIFAXIMIN
     Indication: PRODUCT USED FOR UNKNOWN INDICATION
     Dosage: 550 MILLIGRAM, TID
     Route: 048
     Dates: start: 20180717, end: 20190313
  5. SUDAFED 24 HOUR [Concomitant]
     Active Substance: PSEUDOEPHEDRINE HYDROCHLORIDE
     Indication: NASAL CONGESTION
     Dosage: 240 MILLIGRAM, ONCE DAILY PRN
     Route: 048
     Dates: start: 20170915, end: 20200218
  6. INJECTAFER [Suspect]
     Active Substance: FERRIC CARBOXYMALTOSE
     Dosage: 750 MILLIGRAM, 460 ML/HR, SINGLE
     Route: 042
     Dates: start: 20190220, end: 20190220
  7. INJECTAFER [Suspect]
     Active Substance: FERRIC CARBOXYMALTOSE
     Dosage: 750 MILLIGRAM, 460 ML/HR, SINGLE
     Route: 042
     Dates: start: 20190227, end: 20190227
  8. PROAIR HFA [Concomitant]
     Active Substance: ALBUTEROL SULFATE
     Indication: WHEEZING
     Dosage: 90 MICROGRAM/ACTUATION, 4 PUFFS EVERY 4 HOURS PRN
     Dates: start: 20160929, end: 20180926
  9. NAPROSYN                           /00256202/ [Concomitant]
     Active Substance: NAPROXEN SODIUM
     Indication: PRODUCT USED FOR UNKNOWN INDICATION
     Dosage: 500 MILLIGRAM, TWICE DAILY WITH FOOD, PRN
     Route: 048
     Dates: start: 20170915, end: 20190313
  10. ROXICODONE [Concomitant]
     Active Substance: OXYCODONE HYDROCHLORIDE
     Indication: SACROILIITIS
  11. PROAIR HFA [Concomitant]
     Active Substance: ALBUTEROL SULFATE
     Indication: ASTHMA
  12. ROXICODONE [Concomitant]
     Active Substance: OXYCODONE HYDROCHLORIDE
     Indication: FIBROMYALGIA
  13. ZANTAC [Concomitant]
     Active Substance: RANITIDINE HYDROCHLORIDE
     Indication: PRODUCT USED FOR UNKNOWN INDICATION
     Dosage: 150 MILLIGRAM, ONCE DAILY PRN
     Route: 048
     Dates: start: 20180517, end: 20200218
  14. INJECTAFER [Suspect]
     Active Substance: FERRIC CARBOXYMALTOSE
     Dosage: 750 MILLIGRAM, 460 ML/HR, SINGLE
     Route: 042
     Dates: start: 20180815, end: 20180815
  15. ROXICODONE [Concomitant]
     Active Substance: OXYCODONE HYDROCHLORIDE
     Indication: PAIN
     Dosage: 5 MILLIGRAM, 1?2 TABLETS, EVERY 4 HOURS PRN
     Route: 048
     Dates: start: 20150831

REACTIONS (16)
  - Arthralgia [Not Recovered/Not Resolved]
  - Anxiety [Not Recovered/Not Resolved]
  - Neck pain [Not Recovered/Not Resolved]
  - Arthritis [Not Recovered/Not Resolved]
  - Palpitations [Not Recovered/Not Resolved]
  - Emotional distress [Not Recovered/Not Resolved]
  - Product quality issue [Unknown]
  - Fibromyalgia [Not Recovered/Not Resolved]
  - Condition aggravated [Not Recovered/Not Resolved]
  - Tachycardia [Not Recovered/Not Resolved]
  - Anhedonia [Not Recovered/Not Resolved]
  - Pain [Not Recovered/Not Resolved]
  - Partner stress [Not Recovered/Not Resolved]
  - Sinus arrhythmia [Not Recovered/Not Resolved]
  - Hypophosphataemia [Recovered/Resolved]
  - Back pain [Not Recovered/Not Resolved]

NARRATIVE: CASE EVENT DATE: 201812
